FAERS Safety Report 10027378 (Version 1)
Quarter: 2014Q1

REPORT INFORMATION
  Report Type: Spontaneous
  Country: FR (occurrence: None)
  Receive Date: 20140319
  Receipt Date: 20140319
  Transmission Date: 20141002
  Serious: Yes (Hospitalization)
  Sender: FDA-Public Use
  Company Number: FR-ALSI-201300311

PATIENT
  Sex: Female

DRUGS (1)
  1. MEDICAL AIR [Suspect]

REACTIONS (6)
  - Device failure [None]
  - Condition aggravated [None]
  - Underdose [None]
  - Product quality issue [None]
  - Device damage [None]
  - Product packaging quantity issue [None]
